FAERS Safety Report 7350887-8 (Version None)
Quarter: 2011Q1

REPORT INFORMATION
  Report Type: 
  Country: None (occurrence: None)
  Receive Date: 20110314
  Receipt Date: 20110310
  Transmission Date: 20110831
  Serious: No
  Sender: FDA-Public Use
  Company Number: US-PFIZER INC-2007064864

PATIENT
  Sex: Female
  Weight: 74.545 kg

DRUGS (5)
  1. CHANTIX [Suspect]
     Indication: SMOKING CESSATION THERAPY
     Dosage: UNK
     Dates: start: 20070401
  2. ACIPHEX [Concomitant]
     Indication: GASTROOESOPHAGEAL REFLUX DISEASE
  3. ACIPHEX [Concomitant]
     Indication: ABDOMINAL PAIN UPPER
  4. LUMIGAN [Concomitant]
     Indication: GLAUCOMA
  5. CHANTIX [Suspect]
     Dosage: UNK

REACTIONS (4)
  - FATIGUE [None]
  - DRUG INEFFECTIVE [None]
  - ABDOMINAL PAIN UPPER [None]
  - DRUG INTOLERANCE [None]
